FAERS Safety Report 22606727 (Version 1)
Quarter: 2023Q2

REPORT INFORMATION
  Report Type: Spontaneous
  Country: US (occurrence: US)
  Receive Date: 20230615
  Receipt Date: 20230615
  Transmission Date: 20230722
  Serious: No
  Sender: FDA-Public Use
  Company Number: US-MYLANLABS-2023M1040553

PATIENT
  Sex: Female

DRUGS (1)
  1. NEURONTIN [Suspect]
     Active Substance: GABAPENTIN
     Indication: Diabetic neuropathy
     Dosage: 200 MILLIGRAM, TID
     Route: 048

REACTIONS (3)
  - Night sweats [Unknown]
  - Pain [Unknown]
  - Headache [Unknown]
